FAERS Safety Report 23199385 (Version 2)
Quarter: 2024Q1

REPORT INFORMATION
  Report Type: Spontaneous
  Country: US (occurrence: US)
  Receive Date: 20231117
  Receipt Date: 20240219
  Transmission Date: 20240410
  Serious: No
  Sender: FDA-Public Use
  Company Number: US-Stemline Therapeutics, Inc.-2023ST004032

PATIENT
  Age: 82 Year
  Sex: Female

DRUGS (2)
  1. ORSERDU [Suspect]
     Active Substance: ELACESTRANT
     Indication: Product used for unknown indication
     Dosage: 345 MG, ONCE A DAY WITH FOOD
     Route: 048
     Dates: start: 20231016
  2. ORSERDU [Suspect]
     Active Substance: ELACESTRANT
     Dosage: 344MG
     Route: 048
     Dates: start: 20231027, end: 20231127

REACTIONS (8)
  - Drug intolerance [Unknown]
  - Tumour marker increased [Unknown]
  - Product use complaint [Unknown]
  - Medication error [Unknown]
  - Drug ineffective [Unknown]
  - Fatigue [Unknown]
  - Hot flush [Recovered/Resolved]
  - Nausea [Recovered/Resolved]

NARRATIVE: CASE EVENT DATE: 20231018
